FAERS Safety Report 4872532-3 (Version None)
Quarter: 2005Q4

REPORT INFORMATION
  Report Type: 
  Country: None (occurrence: None)
  Receive Date: 20051230
  Receipt Date: 20051230
  Transmission Date: 20060501
  Serious: Yes (Other)
  Sender: FDA-Public Use
  Company Number: None

PATIENT
  Sex: Male

DRUGS (3)
  1. NOVALOG 10 ML NOVO NORDISK INC [Suspect]
     Indication: DIABETES MELLITUS NON-INSULIN-DEPENDENT
     Dosage: SLIDING SCALE 3 + TIMES DAILY SUBDERMAL
     Route: 059
     Dates: start: 20051101, end: 20051201
  2. NOVALOG 10 ML NOVO NORDISK INC [Suspect]
     Indication: DIABETES MELLITUS NON-INSULIN-DEPENDENT
     Dosage: SLIDING SCALE 3 + TIMES DAILY SUBDERMAL
     Route: 059
     Dates: start: 20051201, end: 20051201
  3. NOVALOG 10 ML NOVO NORDISK INC [Suspect]

REACTIONS (3)
  - MUSCLE SPASMS [None]
  - PAIN [None]
  - PHARMACEUTICAL PRODUCT COMPLAINT [None]
